FAERS Safety Report 8236152 (Version 3)
Quarter: 2013Q2

REPORT INFORMATION
  Report Type: Spontaneous
  Country: US (occurrence: US)
  Receive Date: 20111108
  Receipt Date: 20130418
  Transmission Date: 20140414
  Serious: Yes (Hospitalization)
  Sender: FDA-Public Use
  Company Number: US-BAYER-2011-105189

PATIENT
  Age: 36 Year
  Sex: Female
  Weight: 82.09 kg

DRUGS (12)
  1. YASMIN [Suspect]
     Indication: CONTRACEPTION
     Dosage: UNK
     Dates: start: 200507, end: 200712
  2. YASMIN [Suspect]
     Indication: PREMENSTRUAL SYNDROME
     Dosage: UNK
     Dates: start: 20080404, end: 20091219
  3. YAZ [Suspect]
     Indication: CONTRACEPTION
     Dosage: UNK
     Dates: start: 200712, end: 200801
  4. YAZ [Suspect]
     Indication: PREMENSTRUAL SYNDROME
  5. MAXALT [Concomitant]
     Indication: MIGRAINE
     Dosage: UNK
     Route: 048
     Dates: start: 2006, end: 2009
  6. FLOVENT [Concomitant]
     Indication: ASTHMA
     Dosage: UNK
     Route: 055
     Dates: start: 2006, end: 2010
  7. ALBUTEROL [Concomitant]
     Indication: ASTHMA
     Dosage: UNK
     Route: 048
     Dates: start: 2006, end: 2010
  8. QVAR [Concomitant]
     Indication: ASTHMA
     Dosage: 2 PUFF(S), BID
     Route: 055
     Dates: start: 2006, end: 2010
  9. SINGULAIR [Concomitant]
     Indication: ASTHMA
     Dosage: UNK
     Dates: start: 2006, end: 2010
  10. METHYLPREDNISOLON [Concomitant]
     Indication: ASTHMA
     Dosage: UNK
     Dates: start: 2006, end: 2010
  11. PRO-AIR [Concomitant]
     Indication: ASTHMA
     Dosage: 2 PUFF(S), Q4HR
     Route: 055
     Dates: start: 2006, end: 2010
  12. PRO-AIR [Concomitant]
     Indication: DYSPNOEA

REACTIONS (7)
  - Cerebrovascular accident [Recovered/Resolved]
  - Pain [Recovered/Resolved]
  - General physical health deterioration [None]
  - Anxiety [None]
  - Emotional distress [None]
  - Anhedonia [None]
  - Hemiparesis [Recovered/Resolved]
